FAERS Safety Report 22308644 (Version 1)
Quarter: 2023Q2

REPORT INFORMATION
  Report Type: Spontaneous
  Country: CN (occurrence: CN)
  Receive Date: 20230511
  Receipt Date: 20230511
  Transmission Date: 20230722
  Serious: Yes (Other)
  Sender: FDA-Public Use
  Company Number: CN-PFIZER INC-PV202300081674

PATIENT
  Age: 12 Year
  Sex: Female

DRUGS (3)
  1. MEDROL [Suspect]
     Active Substance: METHYLPREDNISOLONE
     Indication: Systemic lupus erythematosus
     Dosage: 16 MG, 2X/DAY
     Route: 048
     Dates: start: 20230227, end: 20230322
  2. MEDROL [Suspect]
     Active Substance: METHYLPREDNISOLONE
     Dosage: 16 MG (QM)/12 MG (QN)
     Route: 048
     Dates: start: 20230323, end: 20230403
  3. MEDROL [Suspect]
     Active Substance: METHYLPREDNISOLONE
     Dosage: 12 MG, 2X/DAY
     Route: 048
     Dates: start: 20230404, end: 20230420

REACTIONS (2)
  - Ocular hypertension [Recovering/Resolving]
  - Visual impairment [Recovering/Resolving]

NARRATIVE: CASE EVENT DATE: 20230328
